FAERS Safety Report 4955973-5 (Version None)
Quarter: 2006Q1

REPORT INFORMATION
  Report Type: 
  Country: None (occurrence: None)
  Receive Date: 20060328
  Receipt Date: 20051026
  Transmission Date: 20060701
  Serious: Yes (Hospitalization)
  Sender: FDA-Public Use
  Company Number: US-MERCK-0510USA09448

PATIENT
  Age: 66 Year
  Sex: Female

DRUGS (1)
  1. VIOXX [Suspect]
     Route: 048
     Dates: start: 20040426, end: 20040930

REACTIONS (9)
  - ANGINA PECTORIS [None]
  - ANGINA UNSTABLE [None]
  - CORONARY ARTERY DISEASE [None]
  - DYSPNOEA [None]
  - INTERVERTEBRAL DISC DISORDER [None]
  - OEDEMA PERIPHERAL [None]
  - POLYTRAUMATISM [None]
  - POST PROCEDURAL COMPLICATION [None]
  - RALES [None]
